FAERS Safety Report 10478410 (Version 1)
Quarter: 2014Q3

REPORT INFORMATION
  Report Type: Spontaneous
  Country: SK (occurrence: SK)
  Receive Date: 20140926
  Receipt Date: 20140926
  Transmission Date: 20150326
  Serious: Yes (Life-Threatening, Hospitalization)
  Sender: FDA-Public Use
  Company Number: SK-MYLANLABS-2014M1005303

PATIENT

DRUGS (3)
  1. IBUPROFEN. [Suspect]
     Active Substance: IBUPROFEN
     Indication: OFF LABEL USE
  2. SODIUM CHLORITE [Suspect]
     Active Substance: SODIUM CHLORITE
     Indication: OVERDOSE
     Dosage: ABOUT 100ML OF 28%
     Route: 048
  3. IBUPROFEN. [Suspect]
     Active Substance: IBUPROFEN
     Indication: OVERDOSE
     Dosage: 12 TABLETS OF 400 MG
     Route: 048

REACTIONS (10)
  - Sepsis [Recovered/Resolved]
  - Burn of internal organs [Recovered/Resolved]
  - Suicide attempt [Recovered/Resolved]
  - Renal failure acute [Recovered/Resolved]
  - Bronchopneumonia [Recovered/Resolved]
  - Disseminated intravascular coagulation [Recovered/Resolved]
  - Hypotension [Recovered/Resolved]
  - Intentional overdose [Recovered/Resolved]
  - Haemolytic anaemia [Recovered/Resolved]
  - Methaemoglobinaemia [Recovered/Resolved]
